FAERS Safety Report 5580451-2 (Version None)
Quarter: 2008Q1

REPORT INFORMATION
  Report Type: 
  Country: None (occurrence: None)
  Receive Date: 20080103
  Receipt Date: 20070620
  Transmission Date: 20080703
  Serious: Yes (Hospitalization, Other)
  Sender: FDA-Public Use
  Company Number: US-ASTRAZENECA-2007UW02275

PATIENT
  Age: 12838 Day
  Sex: Female
  Weight: 77.3 kg

DRUGS (22)
  1. SEROQUEL [Suspect]
     Indication: SCHIZOPHRENIA
     Route: 048
     Dates: start: 20010927, end: 20021201
  2. SEROQUEL [Suspect]
     Indication: BIPOLAR DISORDER
     Route: 048
     Dates: start: 20010927, end: 20021201
  3. SEROQUEL [Suspect]
     Route: 048
     Dates: start: 20010927, end: 20021201
  4. SEROQUEL [Suspect]
     Dosage: 25 - 200 MG
     Route: 048
     Dates: start: 20040607, end: 20050401
  5. SEROQUEL [Suspect]
     Dosage: 25 - 200 MG
     Route: 048
     Dates: start: 20040607, end: 20050401
  6. SEROQUEL [Suspect]
     Dosage: 25 - 200 MG
     Route: 048
     Dates: start: 20040607, end: 20050401
  7. RISPERDAL [Suspect]
     Indication: SCHIZOPHRENIA
     Dates: start: 20041123, end: 20041222
  8. ABILIFY [Concomitant]
     Dates: start: 20050815, end: 20051001
  9. DEPAKOTE [Concomitant]
     Dates: start: 20041123
  10. DEPAKOTE [Concomitant]
     Dates: start: 20050701, end: 20050901
  11. TEGRETOL [Concomitant]
     Route: 048
     Dates: start: 20010720
  12. RESTORIL [Concomitant]
     Route: 048
     Dates: start: 20010928
  13. GEODON [Concomitant]
     Route: 048
     Dates: start: 20010928
  14. ZOLOFT [Concomitant]
     Route: 048
  15. TRIAVIL [Concomitant]
     Dosage: 4 MG/25 MG
     Route: 048
  16. REMERON [Concomitant]
     Route: 048
     Dates: start: 20011106
  17. PROZAC [Concomitant]
     Route: 048
     Dates: start: 20020219
  18. PROZAC [Concomitant]
     Route: 048
     Dates: start: 20031018
  19. LITHIUM CARBONATE [Concomitant]
     Route: 048
     Dates: start: 20051018
  20. TRAZODONE HCL [Concomitant]
     Route: 048
  21. KLONOPIN [Concomitant]
     Route: 048
  22. ZYPREXA [Concomitant]
     Route: 048
     Dates: start: 20010612

REACTIONS (18)
  - CONTUSION [None]
  - COUGH [None]
  - DEPRESSION SUICIDAL [None]
  - DYSURIA [None]
  - FATIGUE [None]
  - GASTROOESOPHAGEAL REFLUX DISEASE [None]
  - HEADACHE [None]
  - HEPATIC CIRRHOSIS [None]
  - INSOMNIA [None]
  - NAUSEA [None]
  - OTITIS EXTERNA [None]
  - PARAESTHESIA [None]
  - PYELONEPHRITIS ACUTE [None]
  - PYREXIA [None]
  - RESPIRATORY TRACT CONGESTION [None]
  - TYPE 2 DIABETES MELLITUS [None]
  - VAGINITIS BACTERIAL [None]
  - VISION BLURRED [None]
